FAERS Safety Report 25656802 (Version 1)
Quarter: 2025Q3

REPORT INFORMATION
  Report Type: Spontaneous
  Country: GB (occurrence: GB)
  Receive Date: 20250807
  Receipt Date: 20250807
  Transmission Date: 20251020
  Serious: Yes (Hospitalization, Other)
  Sender: Hugel Aesthetics
  Company Number: GB-Hugel Aesthetics-2182074

PATIENT
  Age: 23 Year
  Weight: 52 kg

DRUGS (1)
  1. LETYBO [Suspect]
     Active Substance: LETIBOTULINUMTOXINA-WLBG
     Indication: Facial cosmetic procedure
     Dates: start: 20250429

REACTIONS (11)
  - Seizure [Recovering/Resolving]
  - Paraesthesia [Unknown]
  - Paraesthesia [Unknown]
  - Fatigue [Unknown]
  - Head titubation [Unknown]
  - Muscle twitching [Unknown]
  - Muscle twitching [Unknown]
  - Hot flush [Unknown]
  - Confusional state [Unknown]
  - Dysarthria [Unknown]
  - Migraine [Unknown]

NARRATIVE: CASE EVENT DATE: 20250516
